FAERS Safety Report 6252614-4 (Version None)
Quarter: 2009Q3

REPORT INFORMATION
  Report Type: 
  Country: None (occurrence: None)
  Receive Date: 20090701
  Receipt Date: 20090624
  Transmission Date: 20100115
  Serious: Yes (Other)
  Sender: FDA-Public Use
  Company Number: CH-ROCHE-640228

PATIENT
  Age: 54 Year
  Sex: Male

DRUGS (3)
  1. CAPECITABINE [Suspect]
     Dosage: DOSE: 2000
     Route: 065
     Dates: start: 20080226
  2. BEVACIZUMAB [Suspect]
     Route: 042
     Dates: start: 20080226, end: 20080813
  3. ELOXATIN [Concomitant]
     Dosage: DOSE: 130
     Dates: start: 20080226

REACTIONS (2)
  - NEOPLASM PROGRESSION [None]
  - NEUROPATHY PERIPHERAL [None]
